FAERS Safety Report 18330786 (Version 2)
Quarter: 2020Q4

REPORT INFORMATION
  Report Type: Spontaneous
  Country: FR (occurrence: FR)
  Receive Date: 20200930
  Receipt Date: 20201015
  Transmission Date: 20210113
  Serious: Yes (Hospitalization)
  Sender: FDA-Public Use
  Company Number: FR-LUPIN PHARMACEUTICALS INC.-2020-06586

PATIENT
  Age: 78 Year
  Sex: Male

DRUGS (2)
  1. LEVODOPA [Concomitant]
     Active Substance: LEVODOPA
     Indication: PARKINSON^S DISEASE
     Dosage: UNK
     Route: 065
  2. AMLODIPINE [Suspect]
     Active Substance: AMLODIPINE BESYLATE
     Indication: BLOOD PRESSURE INCREASED
     Dosage: 10 MILLIGRAM, QD
     Route: 065

REACTIONS (6)
  - Weight decreased [Recovering/Resolving]
  - Gingival hypertrophy [Recovering/Resolving]
  - Decreased appetite [Recovering/Resolving]
  - Gingival bleeding [Recovered/Resolved]
  - Tooth disorder [Recovering/Resolving]
  - Malnutrition [Recovering/Resolving]
